FAERS Safety Report 5316306-8 (Version None)
Quarter: 2007Q2

REPORT INFORMATION
  Report Type: 
  Country: None (occurrence: None)
  Receive Date: 20070430
  Receipt Date: 20070413
  Transmission Date: 20071010
  Serious: Yes (Hospitalization, Other)
  Sender: FDA-Public Use
  Company Number: 011366

PATIENT
  Age: 83 Year
  Sex: Female
  Weight: 39.9 kg

DRUGS (3)
  1. HYDRALAZINE HCI(HYDRALAZINE HYDROCHLORIDE) TEBLET, 10MG [Suspect]
     Indication: HYPERTENSION
     Dosage: 20 MG, QD, ORAL
     Route: 048
     Dates: start: 20060901, end: 20070211
  2. ZESTRIL [Concomitant]
  3. SYNTHROID [Concomitant]

REACTIONS (12)
  - CELLULITIS [None]
  - DRY SKIN [None]
  - GAIT DISTURBANCE [None]
  - HAEMOGLOBIN DECREASED [None]
  - INCREASED APPETITE [None]
  - OEDEMA PERIPHERAL [None]
  - PAIN IN EXTREMITY [None]
  - PARAESTHESIA [None]
  - PRURITUS [None]
  - RASH [None]
  - SKIN DISCOLOURATION [None]
  - URTICARIA [None]
